FAERS Safety Report 14204605 (Version 4)
Quarter: 2018Q3

REPORT INFORMATION
  Report Type: Spontaneous
  Country: US (occurrence: US)
  Receive Date: 20171120
  Receipt Date: 20180703
  Transmission Date: 20181010
  Serious: No
  Sender: FDA-Public Use
  Company Number: US-PFIZER INC-2017494696

PATIENT
  Sex: Female
  Weight: 61.22 kg

DRUGS (20)
  1. PROCHLORPERAZINE MALEATE. [Concomitant]
     Active Substance: PROCHLORPERAZINE MALEATE
  2. DOCETAXEL. [Suspect]
     Active Substance: DOCETAXEL
     Indication: BREAST CANCER FEMALE
     Dosage: 119 MG, EVERY 3 WEEKS (CYCLES 1?3)
     Dates: start: 20110404
  3. TAXOTERE [Suspect]
     Active Substance: DOCETAXEL
     Dosage: 123 MG, EVERY 3 WEEKS (CYCLE 6)
     Dates: end: 20110719
  4. ADRIAMYCIN [Concomitant]
     Active Substance: DOXORUBICIN HYDROCHLORIDE
     Indication: CHEMOTHERAPY
  5. ONDANSETRON [Concomitant]
     Active Substance: ONDANSETRON
  6. HEPARIN [Concomitant]
     Active Substance: HEPARIN SODIUM
  7. DOCETAXEL. [Suspect]
     Active Substance: DOCETAXEL
     Indication: CHEMOTHERAPY
     Dosage: 120 MG, EVERY 3 WEEKS (CYCLES 4 + 5)
  8. DOXIL [Concomitant]
     Active Substance: DOXORUBICIN HYDROCHLORIDE
     Indication: CHEMOTHERAPY
  9. TAMOXIFEN [Concomitant]
     Active Substance: TAMOXIFEN
     Dosage: UNK
     Dates: start: 20110803, end: 201109
  10. DOCETAXEL. [Suspect]
     Active Substance: DOCETAXEL
     Dosage: 123 MG, EVERY 3 WEEKS (CYCLE 6)
     Dates: end: 20110719
  11. NEOSAR [Concomitant]
     Active Substance: CYCLOPHOSPHAMIDE
     Indication: CHEMOTHERAPY
  12. NEULASTA [Concomitant]
     Active Substance: PEGFILGRASTIM
  13. ALOXI [Concomitant]
     Active Substance: PALONOSETRON HYDROCHLORIDE
  14. DEXAMETHASONE. [Concomitant]
     Active Substance: DEXAMETHASONE
  15. TYLENOL WITH CODEINE [Concomitant]
     Active Substance: ACETAMINOPHEN\CODEINE PHOSPHATE
     Dosage: UNK
     Dates: start: 20101125, end: 20101231
  16. TAXOTERE [Suspect]
     Active Substance: DOCETAXEL
     Indication: CHEMOTHERAPY
     Dosage: 119 MG, EVERY 3 WEEKS (CYCLES 1 TO 3)
     Dates: start: 20110404
  17. TAXOTERE [Suspect]
     Active Substance: DOCETAXEL
     Indication: BREAST CANCER FEMALE
     Dosage: 120 MG, EVERY 3 WEEKS (CYCLES 4 + 5)
  18. CYTOXAN [Concomitant]
     Active Substance: CYCLOPHOSPHAMIDE
     Indication: CHEMOTHERAPY
  19. VICODIN [Concomitant]
     Active Substance: ACETAMINOPHEN\HYDROCODONE BITARTRATE
  20. VALTREX [Concomitant]
     Active Substance: VALACYCLOVIR HYDROCHLORIDE
     Dosage: UNK
     Dates: start: 2004, end: 2011

REACTIONS (5)
  - Alopecia [Not Recovered/Not Resolved]
  - Hair disorder [Not Recovered/Not Resolved]
  - Madarosis [Not Recovered/Not Resolved]
  - Hair colour changes [Not Recovered/Not Resolved]
  - Hair texture abnormal [Not Recovered/Not Resolved]

NARRATIVE: CASE EVENT DATE: 20111219
